FAERS Safety Report 16983038 (Version 1)
Quarter: 2019Q4

REPORT INFORMATION
  Report Type: Spontaneous
  Country: US (occurrence: US)
  Receive Date: 20191030
  Receipt Date: 20191030
  Transmission Date: 20200122
  Serious: Yes (Other)
  Sender: FDA-Public Use
  Company Number: None

PATIENT
  Age: 66 Year
  Sex: Female
  Weight: 51.3 kg

DRUGS (1)
  1. HEMPVANA PAIN RELIEF [Suspect]
     Active Substance: TROLAMINE SALICYLATE
     Indication: ARTHRALGIA
     Dosage: ?          QUANTITY:1 CREAM;?
     Route: 061

REACTIONS (3)
  - Drug ineffective [None]
  - Pain [None]
  - Feeling abnormal [None]

NARRATIVE: CASE EVENT DATE: 20191029
